FAERS Safety Report 8597934-3 (Version None)
Quarter: 2012Q3

REPORT INFORMATION
  Report Type: 
  Country: None (occurrence: None)
  Receive Date: 20120816
  Receipt Date: 20120810
  Transmission Date: 20120928
  Serious: No
  Sender: FDA-Public Use
  Company Number: US-BAYER-2012-082811

PATIENT
  Age: 65 Year
  Sex: Male

DRUGS (1)
  1. GADAVIST [Suspect]
     Indication: NUCLEAR MAGNETIC RESONANCE IMAGING
     Dosage: ON
     Dates: start: 20120810, end: 20120810

REACTIONS (2)
  - EYE PRURITUS [None]
  - EYE IRRITATION [None]
